FAERS Safety Report 16330854 (Version 1)
Quarter: 2019Q2

REPORT INFORMATION
  Report Type: Spontaneous
  Country: US (occurrence: US)
  Receive Date: 20190412
  Receipt Date: 20190412
  Transmission Date: 20190711
  Serious: No
  Sender: FDA-Public Use
  Company Number: None

PATIENT

DRUGS (1)
  1. SYMDEKO [Suspect]
     Active Substance: IVACAFTOR\TEZACAFTOR
     Dates: start: 20180601

REACTIONS (2)
  - Pulmonary function test decreased [None]
  - Pneumonia [None]

NARRATIVE: CASE EVENT DATE: 20190212
